FAERS Safety Report 6408497-2 (Version None)
Quarter: 2009Q4

REPORT INFORMATION
  Report Type: 
  Country: None (occurrence: None)
  Receive Date: 20091021
  Receipt Date: 20091001
  Transmission Date: 20100525
  Serious: Yes (Hospitalization, Other)
  Sender: FDA-Public Use
  Company Number: AT-ELI_LILLY_AND_COMPANY-AT200910000619

PATIENT
  Age: 57 Year
  Sex: Female

DRUGS (9)
  1. ZYPREXA [Suspect]
     Dosage: 10 MG, DAILY (1/D)
     Dates: start: 20070101, end: 20090617
  2. ZYPREXA [Suspect]
     Dosage: 5 MG, DAILY (1/D)
     Dates: start: 20090618
  3. MIRTABENE [Concomitant]
     Dosage: 30 MG, DAILY (1/D)
     Dates: start: 20070101, end: 20090616
  4. MIRTABENE [Concomitant]
     Dosage: 60 MG, DAILY (1/D)
     Dates: start: 20090617, end: 20090624
  5. MIRTABENE [Concomitant]
     Dosage: 45 MG, DAILY (1/D)
     Dates: start: 20090626
  6. PANTOLOC /01263201/ [Concomitant]
     Dosage: 40 MG, DAILY (1/D)
     Dates: start: 20090617
  7. EUTHROID-1 [Concomitant]
     Dosage: 0.11 MG, DAILY (1/D)
     Dates: start: 20090617
  8. CREON [Concomitant]
     Dosage: 50 U, DAILY (1/D)
     Dates: start: 20090617
  9. ALCOHOL [Concomitant]

REACTIONS (3)
  - ANXIETY DISORDER [None]
  - DEPRESSION [None]
  - ELECTROCARDIOGRAM QT PROLONGED [None]
